FAERS Safety Report 11345240 (Version 1)
Quarter: 2015Q3

REPORT INFORMATION
  Report Type: Report from Study
  Country: US (occurrence: US)
  Receive Date: 20150806
  Receipt Date: 20150806
  Transmission Date: 20151125
  Serious: No
  Sender: FDA-Public Use
  Company Number: US-ABBVIE-15P-163-1425302-00

PATIENT
  Age: 61 Year
  Sex: Female

DRUGS (1)
  1. VIEKIRA PAK [Suspect]
     Active Substance: DASABUVIR\OMBITASVIR\PARITAPREVIR\RITONAVIR
     Indication: HEPATITIS C
     Dosage: 2 PINK DAILY AM AND 1 BEIGE BID (AM/PM)
     Route: 048
     Dates: start: 201505

REACTIONS (3)
  - Nasopharyngitis [Unknown]
  - Arthropathy [Unknown]
  - Throat irritation [Unknown]

NARRATIVE: CASE EVENT DATE: 20150602
